FAERS Safety Report 7985348-6 (Version None)
Quarter: 2011Q4

REPORT INFORMATION
  Report Type: 
  Country: None (occurrence: None)
  Receive Date: 20111216
  Receipt Date: 20111007
  Transmission Date: 20120403
  Serious: No
  Sender: FDA-Public Use
  Company Number: US-ABBOTT-11P-163-0862840-00

PATIENT
  Sex: Male
  Weight: 88.53 kg

DRUGS (2)
  1. TRILIPIX [Suspect]
     Indication: BLOOD CHOLESTEROL INCREASED
     Dates: start: 20110401
  2. ASPIRIN [Concomitant]
     Indication: PROPHYLAXIS

REACTIONS (1)
  - ANXIETY [None]
